FAERS Safety Report 4554127-4 (Version None)
Quarter: 2005Q1

REPORT INFORMATION
  Report Type: 
  Country: None (occurrence: None)
  Receive Date: 20050113
  Receipt Date: 20050113
  Transmission Date: 20050727
  Serious: Yes (Life-Threatening, Disabling)
  Sender: FDA-Public Use
  Company Number: None

PATIENT
  Age: 53 Year
  Sex: Male
  Weight: 95.2554 kg

DRUGS (7)
  1. CRESTOR [Suspect]
     Indication: HYPERLIPIDAEMIA
     Dosage: CRESTOR  80MG  ORAL
     Route: 048
     Dates: start: 20040301, end: 20040901
  2. GLUCOPHAGE [Concomitant]
  3. GLYBURIDE [Concomitant]
  4. TRICOR [Concomitant]
  5. AVALIDE [Concomitant]
  6. PREVACID [Concomitant]
  7. TOPROL-XL [Concomitant]

REACTIONS (9)
  - ABASIA [None]
  - ASTHENIA [None]
  - CHILLS [None]
  - DYSSTASIA [None]
  - IMPAIRED WORK ABILITY [None]
  - MASS [None]
  - MYALGIA [None]
  - PAIN IN EXTREMITY [None]
  - PYREXIA [None]
